FAERS Safety Report 23077722 (Version 1)
Quarter: 2023Q4

REPORT INFORMATION
  Report Type: Spontaneous
  Country: US (occurrence: US)
  Receive Date: 20231018
  Receipt Date: 20231018
  Transmission Date: 20240110
  Serious: Yes (Life-Threatening, Other)
  Sender: FDA-Public Use
  Company Number: US-SANDOZ-SDZ2023US042117

PATIENT
  Age: 75 Year
  Sex: Female

DRUGS (3)
  1. HYDROCORTISONE [Suspect]
     Active Substance: HYDROCORTISONE
     Indication: Adrenal insufficiency
     Route: 065
  2. PREDNISONE [Suspect]
     Active Substance: PREDNISONE
     Indication: Eosinophilic pneumonia acute
     Route: 065
  3. PREDNISONE [Suspect]
     Active Substance: PREDNISONE
     Indication: Hypersensitivity pneumonitis

REACTIONS (3)
  - Septic shock [Unknown]
  - Multiple organ dysfunction syndrome [Unknown]
  - Pneumonia [Unknown]
